FAERS Safety Report 18677632 (Version 1)
Quarter: 2020Q4

REPORT INFORMATION
  Report Type: Spontaneous
  Country: US (occurrence: US)
  Receive Date: 20201229
  Receipt Date: 20201229
  Transmission Date: 20210114
  Serious: Yes (Other)
  Sender: FDA-Public Use
  Company Number: NVSC2020US341164

PATIENT
  Sex: Female

DRUGS (2)
  1. LATANOPROST. [Suspect]
     Active Substance: LATANOPROST
     Indication: GLAUCOMA
     Dosage: 1 DRP, QD 1 DRP (DAILY BOTH EYES)
     Route: 065
  2. PAREXEL [Concomitant]
     Indication: PRODUCT USED FOR UNKNOWN INDICATION
     Dosage: UNK
     Route: 065

REACTIONS (10)
  - Palpitations [Unknown]
  - Gastrooesophageal reflux disease [Unknown]
  - Stomatitis [Not Recovered/Not Resolved]
  - Herpes virus infection [Unknown]
  - Respiratory tract infection [Unknown]
  - Night sweats [Unknown]
  - Eye irritation [Unknown]
  - Pneumonia [Unknown]
  - Lower respiratory tract infection [Unknown]
  - Tympanic membrane perforation [Unknown]
